FAERS Safety Report 4346458-8 (Version None)
Quarter: 2004Q2

REPORT INFORMATION
  Report Type: 
  Country: None (occurrence: None)
  Receive Date: 20040426
  Receipt Date: 20030325
  Transmission Date: 20050107
  Serious: No
  Sender: FDA-Public Use
  Company Number: US-BRISTOL-MYERS SQUIBB COMPANY-12222253

PATIENT
  Age: 61 Year
  Sex: Female
  Weight: 110 kg

DRUGS (6)
  1. PARAPLATIN [Suspect]
     Indication: ENDOMETRIAL CANCER
     Route: 042
     Dates: start: 20030317, end: 20030317
  2. TAXOL [Concomitant]
     Route: 042
     Dates: start: 20030317, end: 20030317
  3. DECADRON [Concomitant]
     Indication: PREMEDICATION
     Route: 042
     Dates: start: 20030317
  4. BENADRYL [Concomitant]
     Indication: PREMEDICATION
     Route: 042
     Dates: start: 20030317
  5. TAGAMET [Concomitant]
     Indication: PREMEDICATION
     Route: 042
     Dates: start: 20030317
  6. ZOFRAN [Concomitant]
     Indication: PREMEDICATION
     Route: 042
     Dates: start: 20030317

REACTIONS (2)
  - PRURITUS [None]
  - RASH GENERALISED [None]
